FAERS Safety Report 23395232 (Version 1)
Quarter: 2024Q1

REPORT INFORMATION
  Report Type: Report from Study
  Country: US (occurrence: US)
  Receive Date: 20240112
  Receipt Date: 20240112
  Transmission Date: 20240410
  Serious: Yes (Other)
  Sender: FDA-Public Use
  Company Number: US-ABBVIE-5537793

PATIENT
  Age: 41 Year
  Sex: Female

DRUGS (2)
  1. RINVOQ [Suspect]
     Active Substance: UPADACITINIB
     Indication: Rheumatoid arthritis
     Dosage: LAST ADMIN DATE: DEC 2023
     Route: 048
     Dates: start: 20231026
  2. RINVOQ [Suspect]
     Active Substance: UPADACITINIB
     Indication: Rheumatoid arthritis
     Route: 048
     Dates: start: 202312

REACTIONS (6)
  - Umbilical hernia [Recovering/Resolving]
  - Dermatitis contact [Recovering/Resolving]
  - Gastroenteritis viral [Recovered/Resolved]
  - Abdominal pain upper [Unknown]
  - Impaired healing [Unknown]
  - Post procedural infection [Unknown]

NARRATIVE: CASE EVENT DATE: 20231201
